FAERS Safety Report 26202466 (Version 1)
Quarter: 2025Q4

REPORT INFORMATION
  Report Type: Spontaneous
  Country: EU (occurrence: EU)
  Receive Date: 20251226
  Receipt Date: 20251226
  Transmission Date: 20260118
  Serious: Yes (Other)
  Sender: TEVA
  Company Number: None

PATIENT
  Age: 38 Year
  Sex: Female

DRUGS (8)
  1. CAPECITABINE [Suspect]
     Active Substance: CAPECITABINE
     Indication: Breast cancer
     Route: 050
     Dates: start: 202103
  2. ADO-TRASTUZUMAB EMTANSINE [Suspect]
     Active Substance: ADO-TRASTUZUMAB EMTANSINE
     Indication: Metastases to lung
     Route: 050
     Dates: start: 202011, end: 202102
  3. PERTUZUMAB [Suspect]
     Active Substance: PERTUZUMAB
     Indication: Breast cancer
     Route: 065
     Dates: start: 201901, end: 201907
  4. TUCATINIB [Suspect]
     Active Substance: TUCATINIB
     Indication: Metastases to lung
     Route: 050
     Dates: start: 202103
  5. TRASTUZUMAB DERUXTECAN [Suspect]
     Active Substance: TRASTUZUMAB DERUXTECAN
     Indication: Metastases to lung
     Dosage: INJECTION, POWDER, LYOPHILIZED, FOR SOLUTION, TIKEN
     Route: 065
     Dates: start: 202203, end: 202210
  6. TRASTUZUMAB [Suspect]
     Active Substance: TRASTUZUMAB
     Indication: Metastases to lung
     Dosage: DOSAGE TEXT: ROUTE OF ADMINISTRATION : UNKNOWN
     Route: 050
     Dates: start: 202103, end: 202210
  7. TRASTUZUMAB [Suspect]
     Active Substance: TRASTUZUMAB
     Indication: Metastases to lung
     Dosage: UNK, NEOADJUVANT CHEMOTHERAPY
     Route: 065
     Dates: start: 201901, end: 201907
  8. TRASTUZUMAB [Suspect]
     Active Substance: TRASTUZUMAB
     Indication: Metastases to lung
     Dosage: UNK, COMPLETION OF THERAPY
     Route: 050
     Dates: start: 201911, end: 202009

REACTIONS (1)
  - Neoplasm progression [Unknown]

NARRATIVE: CASE EVENT DATE: 20211001
